FAERS Safety Report 6371576-2 (Version None)
Quarter: 2009Q3

REPORT INFORMATION
  Report Type: 
  Country: None (occurrence: None)
  Receive Date: 20090923
  Receipt Date: 20090713
  Transmission Date: 20100115
  Serious: Yes (Hospitalization)
  Sender: FDA-Public Use
  Company Number: US-ASTRAZENECA-2007UW24689

PATIENT
  Age: 17563 Day
  Sex: Male
  Weight: 99.8 kg

DRUGS (16)
  1. SEROQUEL [Suspect]
     Indication: DEPRESSION
     Route: 048
     Dates: start: 20040712, end: 20070301
  2. SEROQUEL [Suspect]
     Indication: DELUSION
     Route: 048
     Dates: start: 20040712, end: 20070301
  3. SEROQUEL [Suspect]
     Indication: BIPOLAR DISORDER
     Route: 048
     Dates: start: 20040712, end: 20070301
  4. TRAZODONE HCL [Concomitant]
     Dates: start: 20020101
  5. ZOLOFT [Concomitant]
     Dates: start: 20061101, end: 20070101
  6. WELLBUTRIN [Concomitant]
     Dates: start: 19970301, end: 20030501
  7. DEPAKOTE [Concomitant]
     Dates: start: 19970401, end: 20000701
  8. PROZAC [Concomitant]
     Dates: start: 19970901, end: 19990501
  9. EFFEXOR [Concomitant]
     Dates: start: 19990501
  10. CELEXA [Concomitant]
     Dates: start: 19991101, end: 20020901
  11. LORAZEPAM [Concomitant]
     Dates: start: 20020601, end: 20030201
  12. PROVIGIL [Concomitant]
     Dates: start: 20030801, end: 20040101
  13. ALPRAZOLAM [Concomitant]
     Dates: start: 20040201, end: 20050301
  14. LEXAPRO [Concomitant]
     Dates: start: 20040701, end: 20070601
  15. NEURONTIN [Concomitant]
     Dates: start: 20040901
  16. LAMICTAL [Concomitant]
     Dates: start: 20070601

REACTIONS (8)
  - ACROCHORDON [None]
  - ANXIETY [None]
  - DIABETES MELLITUS [None]
  - FOOT DEFORMITY [None]
  - MENTAL DISORDER [None]
  - SCHIZOPHRENIA [None]
  - SINUS DISORDER [None]
  - SKIN LESION [None]
